FAERS Safety Report 7746814-1 (Version None)
Quarter: 2011Q3

REPORT INFORMATION
  Report Type: 
  Country: None (occurrence: None)
  Receive Date: 20110913
  Receipt Date: 20110829
  Transmission Date: 20111222
  Serious: No
  Sender: FDA-Public Use
  Company Number: US-PFIZER INC-2011212311

PATIENT
  Sex: Male

DRUGS (2)
  1. IBUPROFEN [Suspect]
     Indication: BACK PAIN
  2. ENBREL [Concomitant]
     Indication: DEMENTIA ALZHEIMER'S TYPE
     Dosage: 25 MG, Q2WK
     Dates: start: 20100917

REACTIONS (1)
  - ABDOMINAL PAIN [None]
